FAERS Safety Report 14916967 (Version 7)
Quarter: 2020Q1

REPORT INFORMATION
  Report Type: Report from Study
  Country: HU (occurrence: HU)
  Receive Date: 20180520
  Receipt Date: 20200117
  Transmission Date: 20200409
  Serious: Yes (Hospitalization)
  Sender: FDA-Public Use
  Company Number: PHHO2018HU006219

PATIENT
  Age: 79 Year
  Sex: Female
  Weight: 75.5 kg

DRUGS (21)
  1. FURON [Concomitant]
     Active Substance: FUROSEMIDE
     Indication: CARDIAC FAILURE CHRONIC
     Dosage: 40 MG, EVERY OTHER DAY
     Route: 048
     Dates: start: 20180306, end: 20180511
  2. KALIUM-R [Concomitant]
     Indication: PROPHYLAXIS
     Dosage: 1 G, EVERY OTHER DAY
     Route: 048
     Dates: start: 20180306, end: 20180508
  3. MAGNE B6 [Concomitant]
     Active Substance: MAGNESIUM\PYRIDOXINE
     Indication: PROPHYLAXIS
     Dosage: 475 MG, QD
     Route: 048
     Dates: start: 201801, end: 20180507
  4. COVIOGAL [Suspect]
     Active Substance: BISOPROLOL FUMARATE
     Dosage: 5 MG, ONCE/SINGLE
     Route: 048
     Dates: start: 20180505, end: 20180505
  5. FURON [Concomitant]
     Active Substance: FUROSEMIDE
     Dosage: 40 MG, EVERY OTHER DAY
     Route: 048
     Dates: start: 20180515
  6. BISOPROLOL [Suspect]
     Active Substance: BISOPROLOL
     Indication: PRODUCT USED FOR UNKNOWN INDICATION
     Route: 065
  7. COVIOGAL [Suspect]
     Active Substance: BISOPROLOL FUMARATE
     Dosage: 2.5 MG, QD
     Route: 048
     Dates: start: 20180505
  8. KALIUM-R [Concomitant]
     Dosage: 1 G, EVERY OTHER DAY
     Route: 048
     Dates: start: 20180517
  9. WARFARIN [Concomitant]
     Active Substance: WARFARIN
     Indication: ATRIAL FIBRILLATION
     Dosage: 1 OR 2MG DAILY CHANGE
     Route: 065
     Dates: start: 20180505, end: 20180508
  10. WARFARIN [Concomitant]
     Active Substance: WARFARIN
     Indication: PROPHYLAXIS
  11. CARDURA [Concomitant]
     Active Substance: DOXAZOSIN MESYLATE
     Dosage: 4 MG, BID
     Route: 048
     Dates: start: 20180514, end: 20180515
  12. CARDURA [Concomitant]
     Active Substance: DOXAZOSIN MESYLATE
     Dosage: 4 MG, QD
     Route: 048
     Dates: start: 20180515, end: 20180516
  13. SACUBITRIL,VALSARTAN [Suspect]
     Active Substance: SACUBITRIL\VALSARTAN
     Indication: CARDIAC FAILURE
     Dosage: 200 MG, BID
     Route: 048
     Dates: start: 20151118
  14. KALIUM-R [Concomitant]
     Dosage: 2 G, UNK
     Route: 048
     Dates: start: 20180515, end: 20180517
  15. CARDURA [Concomitant]
     Active Substance: DOXAZOSIN MESYLATE
     Indication: HYPERTENSION
     Dosage: 4 MG, QD
     Route: 048
     Dates: start: 201801, end: 20180514
  16. CARDURA [Concomitant]
     Active Substance: DOXAZOSIN MESYLATE
     Dosage: 4 MG, BID
     Route: 048
     Dates: start: 20180516
  17. PLACEBO [Suspect]
     Active Substance: UNSPECIFIED INGREDIENT
     Indication: CARDIAC FAILURE
     Dosage: UNK
     Route: 048
     Dates: start: 20151118
  18. COVIOGAL [Suspect]
     Active Substance: BISOPROLOL FUMARATE
     Indication: HYPERTENSION
     Dosage: 2.5 MG, QD
     Route: 048
     Dates: start: 20180306, end: 20180423
  19. CORDARONE [Suspect]
     Active Substance: AMIODARONE HYDROCHLORIDE
     Indication: PRODUCT USED FOR UNKNOWN INDICATION
     Dosage: 200 MG, BID
     Route: 048
     Dates: start: 20170917, end: 20180423
  20. COSOPT [Concomitant]
     Active Substance: DORZOLAMIDE HYDROCHLORIDE\TIMOLOL MALEATE
     Indication: CATARACT OPERATION
     Dosage: 1 DROP DF, BID
     Route: 047
     Dates: start: 20151126
  21. HUMULIN M3 [Concomitant]
     Active Substance: INSULIN HUMAN
     Indication: DIABETES MELLITUS
     Dosage: 28 IU, TOTAL DAILY DOSE
     Route: 058
     Dates: start: 20170915

REACTIONS (1)
  - Sinus node dysfunction [Recovered/Resolved with Sequelae]

NARRATIVE: CASE EVENT DATE: 20180423
